FAERS Safety Report 7680998-9 (Version None)
Quarter: 2011Q3

REPORT INFORMATION
  Report Type: 
  Country: None (occurrence: None)
  Receive Date: 20110812
  Receipt Date: 20110804
  Transmission Date: 20111222
  Serious: Yes (Other)
  Sender: FDA-Public Use
  Company Number: IT-JNJFOC-20110803204

PATIENT
  Age: 28 Year
  Sex: Female

DRUGS (5)
  1. RIFAXIMIN [Suspect]
     Indication: ILL-DEFINED DISORDER
     Route: 065
     Dates: start: 20110804, end: 20110804
  2. BETAMETHASONE SODIUM PHOSPHATE [Suspect]
     Indication: ILL-DEFINED DISORDER
     Route: 065
     Dates: start: 20110804, end: 20110804
  3. CEFACLOR [Suspect]
     Indication: ILL-DEFINED DISORDER
     Route: 065
     Dates: start: 20110804, end: 20110804
  4. SPORANOX [Suspect]
     Indication: ILL-DEFINED DISORDER
     Route: 065
     Dates: start: 20110804, end: 20110804
  5. AUGMENTIN '125' [Suspect]
     Indication: ILL-DEFINED DISORDER
     Route: 065
     Dates: start: 20110804, end: 20110804

REACTIONS (3)
  - SELF INJURIOUS BEHAVIOUR [None]
  - VOMITING [None]
  - MULTIPLE DRUG OVERDOSE [None]
